FAERS Safety Report 23787595 (Version 1)
Quarter: 2024Q2

REPORT INFORMATION
  Report Type: Report from Study
  Country: US (occurrence: US)
  Receive Date: 20240426
  Receipt Date: 20240426
  Transmission Date: 20240717
  Serious: Yes (Hospitalization, Other)
  Sender: FDA-Public Use
  Company Number: US-ABBVIE-5729902

PATIENT
  Sex: Female

DRUGS (2)
  1. RINVOQ [Suspect]
     Active Substance: UPADACITINIB
     Indication: Ankylosing spondylitis
     Dosage: LAST ADMINISTRATION DATE: 2024
     Route: 048
     Dates: start: 20240213
  2. RINVOQ [Suspect]
     Active Substance: UPADACITINIB
     Indication: Ankylosing spondylitis
     Dosage: FIRST ADMINISTRATION DATE: 2024
     Route: 048

REACTIONS (3)
  - Periorbital cellulitis [Not Recovered/Not Resolved]
  - Hordeolum [Recovering/Resolving]
  - Facial pain [Unknown]

NARRATIVE: CASE EVENT DATE: 20240101
